FAERS Safety Report 4535378-1 (Version None)
Quarter: 2004Q4

REPORT INFORMATION
  Report Type: 
  Country: None (occurrence: None)
  Receive Date: 20041222
  Receipt Date: 20041203
  Transmission Date: 20050328
  Serious: Yes (Hospitalization)
  Sender: FDA-Public Use
  Company Number: US-ABBOTT-04P-163-0282472-00

PATIENT
  Sex: Female

DRUGS (11)
  1. BIAXIN [Suspect]
     Indication: PYREXIA
  2. BIAXIN [Suspect]
     Indication: INFECTION
     Route: 048
     Dates: start: 20041101, end: 20041203
  3. CEFOXITIN [Interacting]
     Indication: PYREXIA
     Route: 042
     Dates: start: 20041203, end: 20041210
  4. CEFOXITIN [Interacting]
     Indication: INFECTION
  5. AMIKACIN [Interacting]
     Indication: PYREXIA
     Route: 042
     Dates: start: 20041203, end: 20041210
  6. AMIKACIN [Interacting]
     Indication: INFECTION
  7. MEROPENEM [Concomitant]
     Indication: DRUG USE FOR UNKNOWN INDICATION
  8. ZITHROMAX [Concomitant]
     Indication: PYREXIA
     Route: 042
     Dates: start: 20041209
  9. ZITHROMAX [Concomitant]
     Indication: INFECTION
  10. CEFTAZIDIME [Concomitant]
     Indication: PYREXIA
     Route: 042
     Dates: start: 20041209
  11. CEFTAZIDIME [Concomitant]
     Indication: INFECTION

REACTIONS (4)
  - BONE MARROW DEPRESSION [None]
  - DRUG INTERACTION [None]
  - HEPATIC FAILURE [None]
  - WHITE BLOOD CELL COUNT DECREASED [None]
